FAERS Safety Report 11516730 (Version 1)
Quarter: 2015Q3

REPORT INFORMATION
  Report Type: Spontaneous
  Country: US (occurrence: US)
  Receive Date: 20150917
  Receipt Date: 20150917
  Transmission Date: 20151125
  Serious: Yes (Other)
  Sender: FDA-Public Use
  Company Number: US-BAYER-2015-420972

PATIENT
  Sex: Female

DRUGS (1)
  1. MIRENA [Suspect]
     Active Substance: LEVONORGESTREL
     Indication: CONTRACEPTION
     Dosage: 20 MCG/24HR, CONT
     Route: 015
     Dates: start: 201409

REACTIONS (8)
  - Alopecia [None]
  - Feeling hot [None]
  - Genital haemorrhage [Recovered/Resolved]
  - Fungal infection [None]
  - Vaginal haemorrhage [Recovered/Resolved]
  - Abdominal pain lower [None]
  - Vaginal haemorrhage [None]
  - Genital haemorrhage [Recovered/Resolved]

NARRATIVE: CASE EVENT DATE: 201409
